FAERS Safety Report 19549301 (Version 1)
Quarter: 2021Q3

REPORT INFORMATION
  Report Type: Spontaneous
  Country: SG (occurrence: SG)
  Receive Date: 20210714
  Receipt Date: 20210714
  Transmission Date: 20211014
  Serious: Yes (Other)
  Sender: FDA-Public Use
  Company Number: SG-ROCHE-2851460

PATIENT
  Sex: Male

DRUGS (3)
  1. RUXOLITINIB [Suspect]
     Active Substance: RUXOLITINIB
     Indication: POLYCYTHAEMIA VERA
     Route: 065
     Dates: start: 20180727, end: 20200213
  2. ASPIRIN. [Concomitant]
     Active Substance: ASPIRIN
     Dates: start: 20180824
  3. PEGASYS [Suspect]
     Active Substance: PEGINTERFERON ALFA-2A
     Indication: POLYCYTHAEMIA VERA
     Dosage: 135 MCG
     Route: 065
     Dates: start: 20170829, end: 20180727

REACTIONS (4)
  - Infertility [Unknown]
  - Off label use [Unknown]
  - Primary hypogonadism [Unknown]
  - Pruritus [Unknown]
